FAERS Safety Report 23722113 (Version 1)
Quarter: 2024Q2

REPORT INFORMATION
  Report Type: Spontaneous
  Country: AU (occurrence: AU)
  Receive Date: 20240409
  Receipt Date: 20240409
  Transmission Date: 20240716
  Serious: Yes (Other)
  Sender: FDA-Public Use
  Company Number: AU-TEVA-VS-3173698

PATIENT
  Age: 20 Year
  Sex: Male

DRUGS (5)
  1. MELATONIN [Suspect]
     Active Substance: MELATONIN
     Route: 065
  2. HERBALS\TETRAHYDROCANNABINOL UNSPECIFIED [Suspect]
     Active Substance: HERBALS\TETRAHYDROCANNABINOL UNSPECIFIED
     Route: 065
  3. FLUOXETINE HYDROCHLORIDE [Suspect]
     Active Substance: FLUOXETINE HYDROCHLORIDE
     Route: 065
  4. LITHIUM [Suspect]
     Active Substance: LITHIUM
     Route: 065
  5. CANNABIDIOL\HERBALS\TETRAHYDROCANNABINOL UNSPECIFIED [Suspect]
     Active Substance: CANNABIDIOL\HERBALS\TETRAHYDROCANNABINOL UNSPECIFIED
     Route: 065

REACTIONS (4)
  - Serotonin syndrome [Unknown]
  - Drug interaction [Unknown]
  - Overdose [Unknown]
  - Generalised tonic-clonic seizure [Unknown]
